FAERS Safety Report 6291390-6 (Version None)
Quarter: 2009Q3

REPORT INFORMATION
  Report Type: 
  Country: None (occurrence: None)
  Receive Date: 20090730
  Receipt Date: 20090721
  Transmission Date: 20100115
  Serious: Yes (Hospitalization, Other)
  Sender: FDA-Public Use
  Company Number: GR-ABBOTT-09P-066-0586549-00

PATIENT
  Age: 80 Year
  Sex: Male
  Weight: 67.5 kg

DRUGS (12)
  1. ZEMPLAR [Suspect]
     Indication: HYPERPARATHYROIDISM SECONDARY
     Route: 042
     Dates: end: 20090718
  2. NITRONG [Concomitant]
     Indication: ANGINA PECTORIS
     Dates: start: 20060707
  3. LOPRESSOR [Concomitant]
     Indication: ANGINA PECTORIS
     Dosage: 50 MG 1/4 TAB BID
     Route: 048
     Dates: start: 20060718
  4. MIMPARA [Concomitant]
     Indication: HYPERCALCAEMIA
     Dates: start: 20090721
  5. LOFTYL [Concomitant]
     Indication: DRUG USE FOR UNKNOWN INDICATION
     Route: 048
  6. ADALAT CC [Concomitant]
     Indication: DRUG USE FOR UNKNOWN INDICATION
     Route: 048
  7. BIOTIN [Concomitant]
     Indication: DRUG USE FOR UNKNOWN INDICATION
     Route: 042
  8. SUPERAMINE [Concomitant]
     Indication: DRUG USE FOR UNKNOWN INDICATION
     Route: 042
  9. RENAGEL [Concomitant]
     Indication: HYPERPHOSPHATAEMIA
     Route: 048
  10. FORSENOL [Concomitant]
     Indication: HYPERPHOSPHATAEMIA
     Route: 048
  11. OMACOR [Concomitant]
     Indication: DYSLIPIDAEMIA
     Route: 048
  12. LEPUR [Concomitant]
     Indication: DYSLIPIDAEMIA
     Route: 048

REACTIONS (7)
  - BLOOD PRESSURE SYSTOLIC INCREASED [None]
  - DYSPNOEA [None]
  - HAEMATOCRIT INCREASED [None]
  - HAEMODIALYSIS [None]
  - HYPERCALCAEMIA [None]
  - HYPERKALAEMIA [None]
  - TRANSIENT ISCHAEMIC ATTACK [None]
